FAERS Safety Report 9748582 (Version 1)
Quarter: 2013Q4

REPORT INFORMATION
  Report Type: Spontaneous
  Country: US (occurrence: US)
  Receive Date: 20131212
  Receipt Date: 20131212
  Transmission Date: 20140711
  Serious: Yes (Other)
  Sender: FDA-Public Use
  Company Number: US-SA-2013SA128877

PATIENT
  Sex: Female

DRUGS (3)
  1. LANTUS SOLOSTAR [Suspect]
     Route: 058
  2. APIDRA SOLOSTAR [Suspect]
     Route: 058
  3. SOLOSTAR [Concomitant]

REACTIONS (2)
  - Breast disorder [Unknown]
  - Breast mass [Unknown]
